FAERS Safety Report 7893552-0 (Version None)
Quarter: 2011Q4

REPORT INFORMATION
  Report Type: 
  Country: None (occurrence: None)
  Receive Date: 20111104
  Receipt Date: 20111021
  Transmission Date: 20120403
  Serious: Yes (Other)
  Sender: FDA-Public Use
  Company Number: FR-JNJFOC-20110512104

PATIENT
  Sex: Female

DRUGS (2)
  1. ZYRTEC [Suspect]
     Indication: AQUAGENIC PRURITUS
     Dosage: 20 ORAL DROPS
     Route: 048
     Dates: start: 20091002, end: 20110518
  2. ZYRTEC [Suspect]
     Route: 048

REACTIONS (4)
  - HYPERTENSION [None]
  - EXTRASYSTOLES [None]
  - SINUS ARREST [None]
  - CARDIAC DISORDER [None]
